FAERS Safety Report 4512487-4 (Version None)
Quarter: 2004Q4

REPORT INFORMATION
  Report Type: 
  Country: None (occurrence: None)
  Receive Date: 20041124
  Receipt Date: 20041104
  Transmission Date: 20050328
  Serious: Yes (Death)
  Sender: FDA-Public Use
  Company Number: USA041183274

PATIENT
  Age: 31 Year
  Sex: Male

DRUGS (1)
  1. ZYPREXA [Suspect]

REACTIONS (2)
  - CARDIAC ARREST [None]
  - THERAPEUTIC AGENT TOXICITY [None]
